FAERS Safety Report 21089193 (Version 2)
Quarter: 2024Q1

REPORT INFORMATION
  Report Type: Spontaneous
  Country: US (occurrence: US)
  Receive Date: 20220715
  Receipt Date: 20240306
  Transmission Date: 20240410
  Serious: No
  Sender: FDA-Public Use
  Company Number: US-SA-SAC20220706000677

PATIENT

DRUGS (2)
  1. LARONIDASE [Suspect]
     Active Substance: LARONIDASE
     Indication: Mucopolysaccharidosis I
     Dosage: 5.8, QW
     Route: 042
     Dates: start: 20210719
  2. LARONIDASE [Suspect]
     Active Substance: LARONIDASE
     Dosage: 8.7 (UNITS NOT PROVIDED), QW
     Route: 042

REACTIONS (2)
  - Malaise [Recovered/Resolved]
  - Drug specific antibody present [Unknown]

NARRATIVE: CASE EVENT DATE: 20240201
